FAERS Safety Report 20053441 (Version 1)
Quarter: 2021Q4

REPORT INFORMATION
  Report Type: Spontaneous
  Country: GB (occurrence: GB)
  Receive Date: 20211110
  Receipt Date: 20211110
  Transmission Date: 20220303
  Serious: Yes (Other)
  Sender: FDA-Public Use
  Company Number: None

PATIENT
  Age: 25 Year
  Sex: Female
  Weight: 57 kg

DRUGS (2)
  1. NORTRIPTYLINE [Suspect]
     Active Substance: NORTRIPTYLINE
     Indication: Migraine
     Dosage: 10/30MG
     Route: 048
     Dates: start: 20210909, end: 20211004
  2. AMITRIPTYLINE [Concomitant]
     Active Substance: AMITRIPTYLINE
     Indication: Ill-defined disorder
     Dosage: UNK

REACTIONS (3)
  - Headache [Recovered/Resolved with Sequelae]
  - Depression [Recovered/Resolved with Sequelae]
  - Thinking abnormal [Unknown]

NARRATIVE: CASE EVENT DATE: 20210920
